FAERS Safety Report 5427365-6 (Version None)
Quarter: 2007Q3

REPORT INFORMATION
  Report Type: 
  Country: None (occurrence: None)
  Receive Date: 20070823
  Receipt Date: 20070628
  Transmission Date: 20080115
  Serious: Yes (Hospitalization)
  Sender: FDA-Public Use
  Company Number: 6035454

PATIENT
  Age: 81 Year
  Sex: Female

DRUGS (10)
  1. WARFARIN SODIUM [Suspect]
     Indication: ATRIAL FIBRILLATION
     Dosage: 2 MG (2 MG, 1 IN 1 D), ORAL
     Route: 048
  2. MOXIFLOXACIN HCL [Suspect]
     Indication: PNEUMONIA
     Dosage: 400 MG (400 MG, 1 IN D ), ORAL
     Route: 048
     Dates: start: 20070608, end: 20070611
  3. CEFUROXIME [Concomitant]
  4. DIGOXIN [Concomitant]
  5. ERYTHROMYCIN [Concomitant]
  6. FUROSEMIDE [Concomitant]
  7. METFORMIN (METFROMIN) [Concomitant]
  8. PRAVASTATIN [Concomitant]
  9. ROSIGLITAZONE [Concomitant]
  10. SOTAIOL (SOTALOL) [Concomitant]

REACTIONS (2)
  - DRUG INTERACTION [None]
  - INTERNATIONAL NORMALISED RATIO INCREASED [None]
